FAERS Safety Report 14114319 (Version 1)
Quarter: 2017Q4

REPORT INFORMATION
  Report Type: Spontaneous
  Country: US (occurrence: US)
  Receive Date: 20171023
  Receipt Date: 20171023
  Transmission Date: 20180321
  Serious: No
  Sender: FDA-Public Use
  Company Number: US-ASTRAZENECA-2017SF07409

PATIENT
  Sex: Female

DRUGS (3)
  1. BYDUREON [Suspect]
     Active Substance: EXENATIDE
     Dosage: UNKNOWN
     Route: 065
  2. PRADAXA [Concomitant]
     Active Substance: DABIGATRAN ETEXILATE MESYLATE
     Indication: ANTICOAGULANT THERAPY
  3. INSULIN [Concomitant]
     Active Substance: INSULIN NOS
     Dosage: 38 EVERY MORNING
     Route: 065

REACTIONS (2)
  - Injection site haemorrhage [Recovered/Resolved]
  - Drug administration error [Unknown]

NARRATIVE: CASE EVENT DATE: 20171017
